FAERS Safety Report 14015442 (Version 5)
Quarter: 2017Q4

REPORT INFORMATION
  Report Type: Spontaneous
  Country: US (occurrence: US)
  Receive Date: 20170927
  Receipt Date: 20171012
  Transmission Date: 20180321
  Serious: Yes (Other)
  Sender: FDA-Public Use
  Company Number: US-TEVA-809792ACC

PATIENT
  Age: 21 Year
  Sex: Female
  Weight: 66.28 kg

DRUGS (2)
  1. PLAN B ONE-STEP [Suspect]
     Active Substance: LEVONORGESTREL
     Indication: POST COITAL CONTRACEPTION
     Dates: start: 20170914, end: 20170914
  2. LISINOPRIL. [Concomitant]
     Active Substance: LISINOPRIL
     Indication: HYPERTENSION

REACTIONS (16)
  - Haematemesis [Recovered/Resolved]
  - Maternal exposure during pregnancy [Unknown]
  - Pregnancy after post coital contraception [Unknown]
  - Vomiting [Recovered/Resolved]
  - Drug hypersensitivity [Unknown]
  - Abdominal pain upper [Unknown]
  - Adnexa uteri pain [Unknown]
  - Abortion spontaneous [Unknown]
  - Chest pain [Recovered/Resolved]
  - Vaginal haemorrhage [Unknown]
  - Seizure [Unknown]
  - Dizziness [Recovered/Resolved]
  - Swelling face [Recovered/Resolved]
  - Dyspnoea [Recovered/Resolved]
  - Nausea [Recovered/Resolved]
  - Gait disturbance [Unknown]

NARRATIVE: CASE EVENT DATE: 20170914
